FAERS Safety Report 14633277 (Version 2)
Quarter: 2018Q3

REPORT INFORMATION
  Report Type: Spontaneous
  Country: US (occurrence: US)
  Receive Date: 20180313
  Receipt Date: 20180912
  Transmission Date: 20181010
  Serious: No
  Sender: FDA-Public Use
  Company Number: US-VIFOR (INTERNATIONAL) INC.-VIT-2018-02532

PATIENT
  Age: 53 Year
  Sex: Female

DRUGS (19)
  1. CLARITIN [Concomitant]
     Active Substance: LORATADINE
  2. CLONIDINE HCL [Concomitant]
     Active Substance: CLONIDINE HYDROCHLORIDE
  3. MYCOPHENOLATE MOFETIL. [Concomitant]
     Active Substance: MYCOPHENOLATE MOFETIL
  4. VELTASSA [Suspect]
     Active Substance: PATIROMER
     Indication: HYPERKALAEMIA
     Route: 048
     Dates: start: 20170627
  5. AMBIEN [Concomitant]
     Active Substance: ZOLPIDEM TARTRATE
  6. AMOXICILLIN. [Concomitant]
     Active Substance: AMOXICILLIN
  7. CALCIUM 600+D [Concomitant]
     Active Substance: CALCIUM\VITAMIN D
  8. FOLIC ACID. [Concomitant]
     Active Substance: FOLIC ACID
  9. PREDNISONE. [Concomitant]
     Active Substance: PREDNISONE
  10. FISH OIL [Concomitant]
     Active Substance: FISH OIL
  11. ATORVASTATIN CALCIUM. [Concomitant]
     Active Substance: ATORVASTATIN CALCIUM
  12. BISOPROLOL FUMARATE. [Concomitant]
     Active Substance: BISOPROLOL FUMARATE
  13. ALENDRONATE SODIUM. [Concomitant]
     Active Substance: ALENDRONATE SODIUM
  14. FERROUS SULFATE. [Concomitant]
     Active Substance: FERROUS SULFATE
  15. MULTIVITAMINS [Concomitant]
     Active Substance: VITAMINS
  16. VITAMIN B COMPLEX [Concomitant]
     Active Substance: CYANOCOBALAMIN\DEXPANTHENOL\NIACINAMIDE\PYRIDOXINE HYDROCHLORIDE\RIBOFLAVIN 5^-PHOSPHATE SODIUM\THIAMINE HYDROCHLORIDE\VITAMIN B COMPLEX
  17. AMLODIPINE BESYLATE. [Concomitant]
     Active Substance: AMLODIPINE BESYLATE
  18. PRILOSEC [Concomitant]
     Active Substance: OMEPRAZOLE MAGNESIUM
  19. TACROLIMUS. [Concomitant]
     Active Substance: TACROLIMUS

REACTIONS (4)
  - Off label use [Unknown]
  - Constipation [Not Recovered/Not Resolved]
  - Abdominal pain [Not Recovered/Not Resolved]
  - Abdominal discomfort [Unknown]

NARRATIVE: CASE EVENT DATE: 20170627
